FAERS Safety Report 4894894-3 (Version None)
Quarter: 2006Q1

REPORT INFORMATION
  Report Type: 
  Country: None (occurrence: None)
  Receive Date: 20060130
  Receipt Date: 20050204
  Transmission Date: 20060701
  Serious: No
  Sender: FDA-Public Use
  Company Number: US-BRISTOL-MYERS SQUIBB COMPANY-12850277

PATIENT
  Age: 44 Year
  Sex: Male
  Weight: 84 kg

DRUGS (3)
  1. GLUCOPHAGE [Suspect]
     Route: 048
     Dates: end: 20040101
  2. EXCEDRIN (MIGRAINE) [Concomitant]
     Indication: NEURALGIA
     Dates: start: 20040101
  3. INSULIN [Concomitant]
     Dosage: DOSAGE FORM = UNITS

REACTIONS (2)
  - DIARRHOEA [None]
  - MUSCLE SPASMS [None]
